FAERS Safety Report 20471715 (Version 1)
Quarter: 2022Q1

REPORT INFORMATION
  Report Type: Spontaneous
  Country: CA (occurrence: CA)
  Receive Date: 20220214
  Receipt Date: 20220214
  Transmission Date: 20220423
  Serious: Yes (Other)
  Sender: FDA-Public Use
  Company Number: CA-PFIZER INC-2017181711

PATIENT
  Age: 72 Year
  Sex: Female

DRUGS (15)
  1. XELJANZ [Suspect]
     Active Substance: TOFACITINIB CITRATE
     Indication: Rheumatoid arthritis
     Dosage: 5 MG, 2X/DAY
     Route: 048
     Dates: start: 20170208, end: 20170420
  2. XELJANZ [Suspect]
     Active Substance: TOFACITINIB CITRATE
     Dosage: 5 MG, 1X/DAY
     Route: 048
     Dates: start: 20170208, end: 2018
  3. XELJANZ [Suspect]
     Active Substance: TOFACITINIB CITRATE
     Dosage: 5 MG, 2X/DAY
     Route: 048
     Dates: start: 20170519, end: 2017
  4. XELJANZ [Suspect]
     Active Substance: TOFACITINIB CITRATE
     Dosage: 5 MG, 1X/DAY
     Route: 048
     Dates: start: 2017, end: 2018
  5. XELJANZ [Suspect]
     Active Substance: TOFACITINIB CITRATE
     Dosage: 5 MG, 2X/DAY
     Route: 048
     Dates: start: 2018, end: 2019
  6. XELJANZ [Suspect]
     Active Substance: TOFACITINIB CITRATE
     Dosage: 5 MG (ONCE A DAY; ALTERNATING WITH 5MG BID)
     Route: 048
     Dates: start: 2019, end: 2021
  7. METHOTREXATE [Concomitant]
     Active Substance: METHOTREXATE
     Indication: Rheumatoid arthritis
     Dosage: 25 MG, WEEKLY
     Route: 058
     Dates: start: 2017, end: 2017
  8. METHOTREXATE [Concomitant]
     Active Substance: METHOTREXATE
     Dosage: 10 MG
     Dates: start: 2017
  9. ATORVASTATIN [Concomitant]
     Active Substance: ATORVASTATIN
     Dosage: 10 MG, 1X/DAY
     Route: 048
  10. HYDROXYCHLOROQUINE [Concomitant]
     Active Substance: HYDROXYCHLOROQUINE
     Indication: Rheumatoid arthritis
     Dosage: 200 MG, 2X/DAY
     Route: 048
  11. PREGABALIN [Concomitant]
     Active Substance: PREGABALIN
     Indication: Herpes zoster
     Dosage: 75 MG
     Dates: start: 201704
  12. DILAUDID [Concomitant]
     Active Substance: HYDROMORPHONE HYDROCHLORIDE
     Dosage: UNK
  13. FENTANYL [Concomitant]
     Active Substance: FENTANYL
     Dosage: UNK
  14. SHINGRIX [Concomitant]
     Active Substance: RECOMBINANT VARICELLA ZOSTER VIRUS (VZV) GLYCOPROTEIN E
     Dosage: UNK
  15. SHINGRIX [Concomitant]
     Active Substance: RECOMBINANT VARICELLA ZOSTER VIRUS (VZV) GLYCOPROTEIN E
     Dosage: UNK (SECOND SHOT)
     Dates: start: 20201105

REACTIONS (4)
  - Infarction [Unknown]
  - Oral herpes [Recovered/Resolved]
  - Condition aggravated [Recovering/Resolving]
  - Dry mouth [Unknown]

NARRATIVE: CASE EVENT DATE: 20170101
